FAERS Safety Report 14601257 (Version 2)
Quarter: 2018Q1

REPORT INFORMATION
  Report Type: Spontaneous
  Country: GB (occurrence: GB)
  Receive Date: 20180305
  Receipt Date: 20180322
  Transmission Date: 20180509
  Serious: Yes (Other)
  Sender: FDA-Public Use
  Company Number: GB-ASTRAZENECA-2018SE24628

PATIENT
  Age: 36 Year
  Sex: Female

DRUGS (1)
  1. ESOMEPRAZOLE MAGNESIUM. [Suspect]
     Active Substance: ESOMEPRAZOLE MAGNESIUM
     Indication: GASTROOESOPHAGEAL REFLUX DISEASE
     Dosage: 40.0MG UNKNOWN
     Route: 048
     Dates: start: 20171109, end: 20171115

REACTIONS (9)
  - Dyspnoea [Unknown]
  - Crying [Unknown]
  - Depression [Unknown]
  - Cough [Unknown]
  - Condition aggravated [Unknown]
  - Lethargy [Unknown]
  - Fatigue [Unknown]
  - Night sweats [Unknown]
  - Agitation [Recovered/Resolved]

NARRATIVE: CASE EVENT DATE: 20171111
